FAERS Safety Report 6260112 (Version 3)
Quarter: 2013Q4

REPORT INFORMATION
  Report Type: Other
  Country: IT (occurrence: IT)
  Receive Date: 20070313
  Receipt Date: 20131126
  Transmission Date: 20140711
  Serious: Yes (Other)
  Sender: FDA-Public Use
  Company Number: IT-BRISTOL-MYERS SQUIBB COMPANY-13709290

PATIENT
  Age: 1 Day
  Sex: 0

DRUGS (2)
  1. EFAVIRENZ CAPS [Suspect]
     Indication: HIV INFECTION
     Dosage: NO OF COURSE:1
     Route: 064
  2. LAMIVUDINE [Concomitant]

REACTIONS (2)
  - Talipes [Unknown]
  - Pregnancy [Recovered/Resolved]
